FAERS Safety Report 16162272 (Version 1)
Quarter: 2019Q2

REPORT INFORMATION
  Report Type: Spontaneous
  Country: US (occurrence: US)
  Receive Date: 20190405
  Receipt Date: 20190405
  Transmission Date: 20190711
  Serious: Yes (Other)
  Sender: FDA-Public Use
  Company Number: US-LUPIN PHARMACEUTICALS INC.-2019-01989

PATIENT
  Age: 76 Year
  Sex: Male
  Weight: 86 kg

DRUGS (1)
  1. RANOLAZINE EXTENDED RELEASE TABLET 1000 MG [Suspect]
     Active Substance: RANOLAZINE
     Indication: ANGINA PECTORIS
     Dosage: 1000 MILLIGRAM, BID
     Route: 048
     Dates: start: 20190310, end: 20190322

REACTIONS (2)
  - Middle insomnia [Recovered/Resolved]
  - Paraesthesia [Recovered/Resolved]

NARRATIVE: CASE EVENT DATE: 20190312
